FAERS Safety Report 7879238-7 (Version None)
Quarter: 2011Q4

REPORT INFORMATION
  Report Type: 
  Country: None (occurrence: None)
  Receive Date: 20111101
  Receipt Date: 20111025
  Transmission Date: 20120403
  Serious: Yes (Hospitalization)
  Sender: FDA-Public Use
  Company Number: US-AMGEN-USASP2010006985

PATIENT
  Age: 66 Year
  Sex: Female

DRUGS (2)
  1. ANTIHYPERTENSIVES [Concomitant]
  2. PROLIA [Suspect]
     Indication: OSTEOPOROSIS POSTMENOPAUSAL
     Dosage: UNK
     Dates: start: 20100804

REACTIONS (10)
  - SCRATCH [None]
  - ACNE [None]
  - RASH MACULAR [None]
  - RASH GENERALISED [None]
  - RASH PRURITIC [None]
  - SINUSITIS [None]
  - PRURITUS [None]
  - SCAB [None]
  - INSOMNIA [None]
  - HAEMORRHAGE [None]
